FAERS Safety Report 10224665 (Version 2)
Quarter: 2014Q2

REPORT INFORMATION
  Report Type: Spontaneous
  Country: US (occurrence: US)
  Receive Date: 20140609
  Receipt Date: 20140609
  Transmission Date: 20141212
  Serious: Yes (Hospitalization)
  Sender: FDA-Public Use
  Company Number: US-B.I. PHARMACEUTICALS,INC./RIDGEFIELD-2013-BI-42904BP

PATIENT
  Sex: Male
  Weight: 113.4 kg

DRUGS (1)
  1. PRADAXA [Suspect]
     Indication: PRODUCT USED FOR UNKNOWN INDICATION
     Dosage: 300 MG
     Route: 065
     Dates: start: 20111104, end: 20120725

REACTIONS (12)
  - Rectal haemorrhage [Unknown]
  - Gastrointestinal haemorrhage [Unknown]
  - Epistaxis [Unknown]
  - Haemoptysis [Unknown]
  - Renal disorder [Unknown]
  - Amnesia [Unknown]
  - Fatigue [Unknown]
  - Asthenia [Unknown]
  - Gangrene [Unknown]
  - Cyanosis [Unknown]
  - Activities of daily living impaired [Unknown]
  - Gait disturbance [Unknown]
